FAERS Safety Report 11274450 (Version 1)
Quarter: 2015Q3

REPORT INFORMATION
  Report Type: Report from Study
  Country: US (occurrence: US)
  Receive Date: 20150715
  Receipt Date: 20150715
  Transmission Date: 20151125
  Serious: No
  Sender: FDA-Public Use
  Company Number: PHHY2012US128696

PATIENT
  Age: 8 Year
  Sex: Male

DRUGS (1)
  1. ICL670A [Suspect]
     Active Substance: DEFERASIROX
     Indication: HAEMOSIDEROSIS
     Dosage: 750
     Route: 048
     Dates: start: 20120508, end: 20150130

REACTIONS (3)
  - Device occlusion [Recovered/Resolved]
  - Malaise [Recovered/Resolved]
  - Localised infection [Recovered/Resolved]

NARRATIVE: CASE EVENT DATE: 20120907
